FAERS Safety Report 19189310 (Version 1)
Quarter: 2021Q2

REPORT INFORMATION
  Report Type: Spontaneous
  Country: US (occurrence: US)
  Receive Date: 20210428
  Receipt Date: 20210428
  Transmission Date: 20210717
  Serious: No
  Sender: FDA-Public Use
  Company Number: None

PATIENT
  Age: 65 Year
  Sex: Male
  Weight: 77.85 kg

DRUGS (16)
  1. ASPIRIN. [Concomitant]
     Active Substance: ASPIRIN
  2. MEDICAL MARIJUANA [Concomitant]
     Active Substance: CANNABIS SATIVA SUBSP. INDICA TOP
  3. NITROSTAT [Concomitant]
     Active Substance: NITROGLYCERIN
  4. URSODIOL. [Concomitant]
     Active Substance: URSODIOL
  5. PROMACTA [Suspect]
     Active Substance: ELTROMBOPAG OLAMINE
     Indication: IMMUNE THROMBOCYTOPENIA
     Route: 048
     Dates: start: 20181214
  6. ATENOLOL. [Concomitant]
     Active Substance: ATENOLOL
  7. JARDIANCE [Concomitant]
     Active Substance: EMPAGLIFLOZIN
  8. METOPROLOL. [Concomitant]
     Active Substance: METOPROLOL
  9. LISINOPRIL. [Concomitant]
     Active Substance: LISINOPRIL
  10. MORPHINE [Concomitant]
     Active Substance: MORPHINE
  11. PENICILLIN [Concomitant]
     Active Substance: PENICILLIN
  12. ATORVASTATIN [Concomitant]
     Active Substance: ATORVASTATIN
  13. ISOSORBIDE MONONITRATE. [Concomitant]
     Active Substance: ISOSORBIDE MONONITRATE
  14. SERTRALINE [Concomitant]
     Active Substance: SERTRALINE HYDROCHLORIDE
  15. FERROUS SULFATE. [Concomitant]
     Active Substance: FERROUS SULFATE
  16. GABAPENTIN. [Concomitant]
     Active Substance: GABAPENTIN

REACTIONS (2)
  - Fatigue [None]
  - Dizziness [None]

NARRATIVE: CASE EVENT DATE: 20210428
